FAERS Safety Report 7412828-4 (Version None)
Quarter: 2011Q2

REPORT INFORMATION
  Report Type: 
  Country: None (occurrence: None)
  Receive Date: 20110413
  Receipt Date: 20110405
  Transmission Date: 20111010
  Serious: Yes (Other)
  Sender: FDA-Public Use
  Company Number: B0711739A

PATIENT
  Sex: Female
  Weight: 45 kg

DRUGS (6)
  1. GASPORT [Concomitant]
     Dosage: 20MG PER DAY
     Route: 048
     Dates: start: 20070803, end: 20071016
  2. SIGMART [Concomitant]
     Dosage: 10MG PER DAY
     Route: 048
     Dates: start: 20070803
  3. ALKERAN [Suspect]
     Indication: STEM CELL TRANSPLANT
     Dosage: 100MGM2 PER DAY
     Route: 042
     Dates: start: 20070803, end: 20070804
  4. RAMELTEON [Concomitant]
     Dosage: .3MG PER DAY
     Route: 042
     Dates: start: 20070803, end: 20070805
  5. MYSLEE [Concomitant]
     Route: 048
     Dates: start: 20070803
  6. MAGNESIUM OXIDE [Concomitant]
     Dosage: 1.5G PER DAY
     Route: 048
     Dates: start: 20070803

REACTIONS (1)
  - BLOOD PRESSURE DECREASED [None]
